FAERS Safety Report 8745697 (Version 2)
Quarter: 2012Q4

REPORT INFORMATION
  Report Type: 
  Country: US (occurrence: US)
  Receive Date: 20120827
  Receipt Date: 20120911
  Transmission Date: 20130627
  Serious: Yes (Hospitalization, Other)
  Sender: FDA-Public Use
  Company Number: US-AMGEN-USASP2012052944

PATIENT
  Age: 69 Year
  Sex: Male
  Weight: 66.67 kg

DRUGS (2)
  1. XGEVA [Suspect]
     Indication: PROSTATE CANCER
     Dosage: 120 mg, q4wk
     Route: 058
  2. XGEVA [Suspect]
     Indication: METASTASES TO BONE

REACTIONS (5)
  - Unresponsive to stimuli [Not Recovered/Not Resolved]
  - Respiratory rate decreased [Not Recovered/Not Resolved]
  - Malaise [Not Recovered/Not Resolved]
  - Heart rate increased [Unknown]
  - Anaemia [Unknown]
